FAERS Safety Report 9557219 (Version 1)
Quarter: 2013Q3

REPORT INFORMATION
  Report Type: Spontaneous
  Country: FR (occurrence: FR)
  Receive Date: 20130926
  Receipt Date: 20130926
  Transmission Date: 20140515
  Serious: Yes (Hospitalization)
  Sender: FDA-Public Use
  Company Number: FR-BAXTER-2013BAX036806

PATIENT
  Age: 71 Year
  Sex: Male

DRUGS (39)
  1. ENDOXAN 2000 MG, LYOPHILISAT POUR SOLUTION INJECTABLE [Suspect]
     Indication: B-CELL LYMPHOMA
     Route: 042
     Dates: start: 20111128
  2. ENDOXAN 2000 MG, LYOPHILISAT POUR SOLUTION INJECTABLE [Suspect]
     Route: 042
     Dates: start: 20111219
  3. ENDOXAN 2000 MG, LYOPHILISAT POUR SOLUTION INJECTABLE [Suspect]
     Route: 042
     Dates: start: 20120109
  4. ENDOXAN 2000 MG, LYOPHILISAT POUR SOLUTION INJECTABLE [Suspect]
     Route: 042
     Dates: start: 20120130
  5. ENDOXAN 2000 MG, LYOPHILISAT POUR SOLUTION INJECTABLE [Suspect]
     Route: 042
     Dates: start: 2012
  6. ENDOXAN 2000 MG, LYOPHILISAT POUR SOLUTION INJECTABLE [Suspect]
     Route: 042
     Dates: start: 20120312, end: 20120312
  7. MABTHERA [Suspect]
     Indication: B-CELL LYMPHOMA
     Route: 042
     Dates: start: 20111219
  8. MABTHERA [Suspect]
     Route: 042
     Dates: start: 20120109
  9. MABTHERA [Suspect]
     Route: 042
     Dates: start: 20120130
  10. MABTHERA [Suspect]
     Route: 042
     Dates: start: 2012
  11. MABTHERA [Suspect]
     Route: 042
     Dates: start: 20120312
  12. MABTHERA [Suspect]
     Dates: start: 20120402
  13. MABTHERA [Suspect]
     Dates: start: 20120423
  14. MABTHERA [Suspect]
     Dates: start: 20120702
  15. MABTHERA [Suspect]
     Dates: start: 20120827
  16. MABTHERA [Suspect]
     Dates: start: 20121022
  17. MABTHERA [Suspect]
     Dates: start: 20121217
  18. MABTHERA [Suspect]
     Dates: start: 20130210
  19. MABTHERA [Suspect]
     Dates: end: 20130212
  20. MABTHERA [Suspect]
     Dates: start: 201205
  21. CORTANCYL [Suspect]
     Indication: B-CELL LYMPHOMA
     Route: 048
     Dates: start: 20111128
  22. CORTANCYL [Suspect]
     Route: 048
     Dates: start: 20111219
  23. CORTANCYL [Suspect]
     Route: 048
     Dates: start: 20120109
  24. CORTANCYL [Suspect]
     Route: 048
     Dates: start: 20120130
  25. CORTANCYL [Suspect]
     Route: 048
     Dates: start: 2012
  26. CORTANCYL [Suspect]
     Route: 048
     Dates: start: 20120312, end: 20120312
  27. MYOCET [Suspect]
     Indication: B-CELL LYMPHOMA
     Route: 042
     Dates: start: 20111128
  28. MYOCET [Suspect]
     Route: 042
     Dates: start: 20111219
  29. MYOCET [Suspect]
     Route: 042
     Dates: start: 20120109
  30. MYOCET [Suspect]
     Route: 042
     Dates: start: 20120130
  31. MYOCET [Suspect]
     Route: 042
     Dates: start: 2012
  32. MYOCET [Suspect]
     Route: 042
     Dates: start: 20120312, end: 20120312
  33. ONCOVIN [Suspect]
     Indication: B-CELL LYMPHOMA
     Route: 042
     Dates: start: 20111128
  34. ONCOVIN [Suspect]
     Route: 042
     Dates: start: 20111219
  35. ONCOVIN [Suspect]
     Route: 042
     Dates: start: 20120109
  36. ONCOVIN [Suspect]
     Route: 042
     Dates: start: 20120130
  37. ONCOVIN [Suspect]
     Route: 042
     Dates: start: 2012
  38. ONCOVIN [Suspect]
     Route: 042
     Dates: start: 20120312, end: 20120312
  39. APROVEL [Suspect]
     Indication: HYPERTENSION

REACTIONS (1)
  - Lung adenocarcinoma stage I [Not Recovered/Not Resolved]
